FAERS Safety Report 7064422-5 (Version None)
Quarter: 2010Q4

REPORT INFORMATION
  Report Type: 
  Country: None (occurrence: None)
  Receive Date: 20101027
  Receipt Date: 20101014
  Transmission Date: 20110411
  Serious: Yes (Other)
  Sender: FDA-Public Use
  Company Number: PHFR2010GB04790

PATIENT
  Sex: Female

DRUGS (5)
  1. TEGRETOL [Suspect]
     Dosage: UNK
  2. DESLORATADINE [Concomitant]
  3. CALCICHEW [Concomitant]
  4. COLAZAL [Concomitant]
  5. SOFRADEX                                /UNK/ [Concomitant]

REACTIONS (1)
  - CONVULSION [None]
